FAERS Safety Report 11396376 (Version 2)
Quarter: 2015Q4

REPORT INFORMATION
  Report Type: Spontaneous
  Country: US (occurrence: US)
  Receive Date: 20150819
  Receipt Date: 20151008
  Transmission Date: 20160304
  Serious: No
  Sender: FDA-Public Use
  Company Number: US-JNJFOC-20150803915

PATIENT
  Age: 79 Year
  Sex: Female
  Weight: 71.67 kg

DRUGS (7)
  1. GLUCOSAMINE SULFATE [Concomitant]
     Active Substance: GLUCOSAMINE SULFATE
     Route: 065
  2. OMEGA 3 FATTY FISH OIL [Concomitant]
     Route: 065
  3. CALCIUM W/MAGNESIUM/ZINC [Concomitant]
     Dosage: CHELATED CALCIUM 1000 MG, MAGNESIUM 400 MG, ZINC 25 MG
     Route: 065
  4. DILTIAZEM [Concomitant]
     Active Substance: DILTIAZEM
     Indication: ATRIAL FIBRILLATION
     Route: 048
     Dates: start: 20150711
  5. ASCORBIC ACID. [Concomitant]
     Active Substance: ASCORBIC ACID
     Route: 065
  6. XARELTO [Suspect]
     Active Substance: RIVAROXABAN
     Indication: CEREBROVASCULAR ACCIDENT PROPHYLAXIS
     Dosage: ONE TABLET WITH EVENING MEAL
     Route: 048
     Dates: start: 20150720, end: 20150805
  7. XARELTO [Suspect]
     Active Substance: RIVAROXABAN
     Indication: ATRIAL FIBRILLATION
     Dosage: ONE TABLET WITH EVENING MEAL
     Route: 048
     Dates: start: 20150720, end: 20150805

REACTIONS (4)
  - Sensory disturbance [Recovered/Resolved]
  - Adverse drug reaction [Recovered/Resolved]
  - Tongue blistering [Recovered/Resolved]
  - Lip blister [Recovered/Resolved]

NARRATIVE: CASE EVENT DATE: 20150730
